FAERS Safety Report 6133506-8 (Version None)
Quarter: 2009Q1

REPORT INFORMATION
  Report Type: 
  Country: None (occurrence: None)
  Receive Date: 20090326
  Receipt Date: 20090324
  Transmission Date: 20090719
  Serious: No
  Sender: FDA-Public Use
  Company Number: JP-EISAI MEDICAL RESEARCH-E2020-04270-CLI-JP

PATIENT
  Age: 81 Year
  Sex: Male

DRUGS (7)
  1. DONEPEZIL HCL [Suspect]
     Indication: DEMENTIA ALZHEIMER'S TYPE
     Route: 048
     Dates: end: 20090309
  2. ZYPREXA [Concomitant]
  3. CARBIDOPA AND LEVODOPA [Concomitant]
  4. DEPAKENE [Concomitant]
  5. POLYFUL [Concomitant]
  6. LAC B [Concomitant]
  7. YOKU-KAN-SAN [Concomitant]

REACTIONS (1)
  - CHROMATURIA [None]
